FAERS Safety Report 5970289-6 (Version None)
Quarter: 2008Q4

REPORT INFORMATION
  Report Type: 
  Country: None (occurrence: None)
  Receive Date: 20081126
  Receipt Date: 20081118
  Transmission Date: 20090506
  Serious: Yes (Other)
  Sender: FDA-Public Use
  Company Number: CA-PFIZER INC-2008098659

PATIENT
  Age: 69 Year
  Sex: Male

DRUGS (7)
  1. CELEBREX [Suspect]
     Indication: ANKYLOSING SPONDYLITIS
     Dosage: DAILY DOSE:200MG
  2. CELEBREX [Suspect]
     Indication: RHEUMATOID ARTHRITIS
  3. PROPRANOLOL [Concomitant]
  4. NEXIUM [Concomitant]
  5. PRAVASTATIN [Concomitant]
  6. AVAPRO [Concomitant]
  7. RAMIPRIL [Concomitant]

REACTIONS (1)
  - RENAL DISORDER [None]
